FAERS Safety Report 13532366 (Version 1)
Quarter: 2017Q2

REPORT INFORMATION
  Report Type: Spontaneous
  Country: CN (occurrence: CN)
  Receive Date: 20170510
  Receipt Date: 20170510
  Transmission Date: 20170830
  Serious: Yes (Other)
  Sender: FDA-Public Use
  Company Number: CN-PFIZER INC-2017201931

PATIENT
  Age: 49 Year
  Sex: Female
  Weight: 63 kg

DRUGS (13)
  1. MANNITOL. [Suspect]
     Active Substance: MANNITOL
     Indication: DEHYDRATION
     Dosage: 125 ML, 4X/DAY
     Route: 041
     Dates: start: 20170316, end: 20170319
  2. SODIUM CHLORIDE. [Concomitant]
     Active Substance: SODIUM CHLORIDE
     Indication: BLOOD SODIUM ABNORMAL
     Dosage: 40 ML, 1X/DAY
     Route: 041
     Dates: start: 20170316, end: 20170318
  3. NEUTRAL INSULIN [Concomitant]
     Active Substance: INSULIN BEEF
     Indication: BLOOD GLUCOSE ABNORMAL
     Dosage: 5 IU, 1X/DAY
     Route: 041
     Dates: start: 20170316, end: 20170318
  4. SODIUM CHLORIDE. [Concomitant]
     Active Substance: SODIUM CHLORIDE
     Dosage: 100ML 1X/DAY
     Route: 041
     Dates: start: 20170316, end: 20170320
  5. DEXTROSE AND SODIUM CHLORIDE INJECTION [Concomitant]
     Dosage: 500 ML, 1X/DAY
     Route: 041
     Dates: start: 20170316, end: 20170318
  6. METHYLPREDNISOLONE SODIUM SUCCINATE. [Suspect]
     Active Substance: METHYLPREDNISOLONE SODIUM SUCCINATE
     Indication: INFLAMMATION
     Dosage: 80 MG, 3X/DAY
     Route: 041
     Dates: start: 20170317, end: 20170317
  7. ESOMEPRAZOLE SODIUM. [Concomitant]
     Active Substance: ESOMEPRAZOLE SODIUM
     Indication: MUSCLE SPASMS
  8. MANNITOL. [Suspect]
     Active Substance: MANNITOL
     Dosage: 125 ML, 3X/DAY
     Dates: start: 20170320
  9. ETIMICIN SULFATE [Concomitant]
     Active Substance: ETIMICIN SULFATE
     Indication: INFECTION
     Dosage: 100 ML, 2X/DAY
     Route: 041
     Dates: start: 20170316, end: 20170320
  10. POTASSIUM CHLORIDE. [Concomitant]
     Active Substance: POTASSIUM CHLORIDE
     Indication: BLOOD POTASSIUM ABNORMAL
     Dosage: 10 ML, 1X/DAY
     Route: 041
     Dates: start: 20170316, end: 20170318
  11. SODIUM CHLORIDE. [Concomitant]
     Active Substance: SODIUM CHLORIDE
     Dosage: 100ML 1X/DAY
     Route: 041
     Dates: start: 20170316, end: 20170316
  12. ESOMEPRAZOLE SODIUM. [Concomitant]
     Active Substance: ESOMEPRAZOLE SODIUM
     Indication: GASTROOESOPHAGEAL REFLUX DISEASE
     Dosage: 40 MG, 1X/DAY
     Route: 041
     Dates: start: 20170316, end: 20170320
  13. CEFTRIAXONE SODIUM. [Concomitant]
     Active Substance: CEFTRIAXONE SODIUM
     Indication: INFECTION
     Dosage: 2 G, 1X/DAY
     Route: 041
     Dates: start: 20170316, end: 20170316

REACTIONS (1)
  - Hypernatraemia [Recovering/Resolving]

NARRATIVE: CASE EVENT DATE: 20170318
